FAERS Safety Report 17705803 (Version 3)
Quarter: 2020Q3

REPORT INFORMATION
  Report Type: Spontaneous
  Country: US (occurrence: US)
  Receive Date: 20200424
  Receipt Date: 20200921
  Transmission Date: 20201102
  Serious: Yes (Other)
  Sender: FDA-Public Use
  Company Number: US-PFIZER INC-2020064709

PATIENT
  Age: 56 Year
  Sex: Female

DRUGS (1)
  1. XELJANZ XR [Suspect]
     Active Substance: TOFACITINIB CITRATE
     Indication: RHEUMATOID ARTHRITIS
     Dosage: 11 MG, 1X/DAY
     Route: 048
     Dates: start: 2015

REACTIONS (4)
  - Hepatic cyst [Unknown]
  - Visual impairment [Not Recovered/Not Resolved]
  - Diarrhoea [Unknown]
  - Renal cyst [Unknown]

NARRATIVE: CASE EVENT DATE: 20200917
